FAERS Safety Report 5186417-9 (Version None)
Quarter: 2006Q4

REPORT INFORMATION
  Report Type: 
  Country: None (occurrence: None)
  Receive Date: 20061220
  Receipt Date: 20061208
  Transmission Date: 20070319
  Serious: Yes (Hospitalization)
  Sender: FDA-Public Use
  Company Number: US-ELI_LILLY_AND_COMPANY-US200612001601

PATIENT
  Sex: Female

DRUGS (3)
  1. EVISTA [Suspect]
     Indication: OSTEOPENIA
  2. ACTONEL                                 /USA/ [Concomitant]
  3. CALTRATE [Concomitant]

REACTIONS (3)
  - BONE DENSITY DECREASED [None]
  - DRUG INTERACTION [None]
  - OVARIAN NEOPLASM [None]
